FAERS Safety Report 11150601 (Version 1)
Quarter: 2015Q2

REPORT INFORMATION
  Report Type: Spontaneous
  Country: US (occurrence: US)
  Receive Date: 20150601
  Receipt Date: 20150601
  Transmission Date: 20150821
  Serious: Yes (Death, Hospitalization)
  Sender: FDA-Public Use
  Company Number: PHHY2015US062569

PATIENT
  Age: 51 Year
  Sex: Female

DRUGS (1)
  1. ENOXAPARIN [Suspect]
     Active Substance: ENOXAPARIN
     Indication: DEEP VEIN THROMBOSIS
     Route: 065

REACTIONS (8)
  - Thrombocytopenia [Unknown]
  - Aphasia [Unknown]
  - Vomiting [Unknown]
  - Seizure [Unknown]
  - Coagulopathy [Unknown]
  - Respiratory failure [Unknown]
  - Hemiplegia [Unknown]
  - Death [Fatal]
